FAERS Safety Report 8815117 (Version 2)
Quarter: 2012Q4

REPORT INFORMATION
  Report Type: 
  Country: IT (occurrence: IT)
  Receive Date: 20120928
  Receipt Date: 20121003
  Transmission Date: 20130627
  Serious: Yes (Hospitalization)
  Sender: FDA-Public Use
  Company Number: IT-BAYER-2012-100152

PATIENT
  Age: 33 Year
  Sex: Female
  Weight: 63 kg

DRUGS (6)
  1. CIPROXIN 500 MG FILM-COATED TABLETS [Suspect]
     Indication: ABDOMINAL PAIN UPPER
     Dosage: 500 mg, QD
     Route: 048
     Dates: start: 20120820, end: 20120821
  2. CIPROXIN 500 MG FILM-COATED TABLETS [Interacting]
     Indication: GASTROENTERITIS VIRAL
  3. CIPROXIN 500 MG FILM-COATED TABLETS [Interacting]
     Indication: PYREXIA
  4. FLAGYL [Interacting]
     Indication: ABDOMINAL PAIN UPPER
     Dosage: 250 mg, ONCE
     Route: 048
     Dates: start: 20120821, end: 20120821
  5. FLAGYL [Interacting]
     Indication: GASTROENTERITIS VIRAL
  6. FLAGYL [Interacting]
     Indication: PYREXIA

REACTIONS (2)
  - Convulsion [Recovered/Resolved]
  - Muscle spasms [Recovered/Resolved]
